FAERS Safety Report 18264284 (Version 1)
Quarter: 2020Q3

REPORT INFORMATION
  Report Type: Spontaneous
  Country: CA (occurrence: CA)
  Receive Date: 20200914
  Receipt Date: 20200914
  Transmission Date: 20201103
  Serious: Yes (Other)
  Sender: FDA-Public Use
  Company Number: CA-SAMSUNG BIOEPIS-SB-2020-28074

PATIENT
  Age: 58 Year
  Sex: Male

DRUGS (2)
  1. ETANERCEPT [Suspect]
     Active Substance: ETANERCEPT
     Route: 058
  2. ETANERCEPT [Suspect]
     Active Substance: ETANERCEPT
     Indication: PSORIATIC ARTHROPATHY
     Dosage: UNKNOWN
     Route: 065

REACTIONS (6)
  - Product use issue [Unknown]
  - Injection site pain [Unknown]
  - Pain in extremity [Unknown]
  - Injection site irritation [Unknown]
  - Psoriatic arthropathy [Unknown]
  - Needle issue [Unknown]
